FAERS Safety Report 6341883-8 (Version None)
Quarter: 2009Q3

REPORT INFORMATION
  Report Type: 
  Country: None (occurrence: None)
  Receive Date: 20090903
  Receipt Date: 20090818
  Transmission Date: 20100115
  Serious: Yes (Other)
  Sender: FDA-Public Use
  Company Number: 2009AL005753

PATIENT
  Age: 81 Year
  Sex: Female

DRUGS (9)
  1. CITALOPRAM HYDROBROMIDE [Suspect]
     Dosage: 20 MG; QD
  2. DICLOFENAC SODIUM EXTENDED-RELEASE TABLETS, 100 MG [Suspect]
     Dosage: BID
  3. FURON [Concomitant]
  4. MIRFULAN [Concomitant]
  5. THEOSPIREX [Concomitant]
  6. ENALAPRILATE [Concomitant]
  7. GABAPENTIN [Concomitant]
  8. SODIUM CHLORIDE [Concomitant]
  9. PRAVASTATIN SODIUM [Concomitant]

REACTIONS (3)
  - HAEMOGLOBIN DECREASED [None]
  - HYPONATRAEMIA [None]
  - ULCER HAEMORRHAGE [None]
